FAERS Safety Report 15719790 (Version 1)
Quarter: 2018Q4

REPORT INFORMATION
  Report Type: Spontaneous
  Country: DK (occurrence: DK)
  Receive Date: 20181213
  Receipt Date: 20181213
  Transmission Date: 20190205
  Serious: Yes (Other)
  Sender: FDA-Public Use
  Company Number: DK-TEVA-2018-DK-985727

PATIENT
  Age: 36 Year
  Sex: Female
  Weight: 85 kg

DRUGS (2)
  1. IBUPROFEN ^TEVA^ [Suspect]
     Active Substance: IBUPROFEN
     Indication: FOOT OPERATION
     Dosage: 1200 MILLIGRAM DAILY; STRENGTH: 400 MG.
     Route: 048
     Dates: start: 20181106, end: 20181108
  2. MARPLAN [Concomitant]
     Active Substance: ISOCARBOXAZID
     Indication: DEPRESSION
     Dosage: DOSAGE: BY APPOINTMENT. STRENGTH: 10 MG.
     Route: 048
     Dates: start: 20180730

REACTIONS (2)
  - Suicidal ideation [Recovered/Resolved]
  - Depression [Recovered/Resolved]

NARRATIVE: CASE EVENT DATE: 20181107
